FAERS Safety Report 9216265 (Version 3)
Quarter: 2014Q3

REPORT INFORMATION
  Report Type: Spontaneous
  Country: US (occurrence: US)
  Receive Date: 20130408
  Receipt Date: 20140904
  Transmission Date: 20150326
  Serious: Yes (Life-Threatening, Disabling, Other)
  Sender: FDA-Public Use
  Company Number: US-BAYER-2013-042595

PATIENT
  Age: 23 Year
  Sex: Female
  Weight: 99.77 kg

DRUGS (2)
  1. OCELLA [Suspect]
     Active Substance: DROSPIRENONE\ETHINYL ESTRADIOL
     Indication: CONTRACEPTION
     Dosage: UNK
     Route: 048
     Dates: start: 201012, end: 201104
  2. YAZ [Suspect]
     Active Substance: DROSPIRENONE\ETHINYL ESTRADIOL
     Indication: CONTRACEPTION
     Dosage: UNK
     Route: 048
     Dates: start: 201012, end: 201104

REACTIONS (9)
  - Anxiety [None]
  - Pain [None]
  - General physical health deterioration [None]
  - Quality of life decreased [None]
  - Emotional distress [None]
  - Thrombophlebitis superficial [Recovered/Resolved]
  - Embolism venous [None]
  - Anhedonia [None]
  - Injury [None]

NARRATIVE: CASE EVENT DATE: 20110330
